FAERS Safety Report 9817665 (Version 1)
Quarter: 2014Q1

REPORT INFORMATION
  Report Type: Spontaneous
  Country: US (occurrence: None)
  Receive Date: 20140110
  Receipt Date: 20140110
  Transmission Date: 20141002
  Serious: Yes (Disabling)
  Sender: FDA-Public Use
  Company Number: None

PATIENT
  Age: 38 Year
  Sex: Male
  Weight: 105.4 kg

DRUGS (14)
  1. EZOGABINE [Suspect]
     Indication: PARTIAL SEIZURES
     Route: 048
     Dates: start: 20130227
  2. ZONISAMIDE [Concomitant]
  3. LEVETHYROXINE [Concomitant]
  4. PREDNISONE [Concomitant]
  5. LACOSAMIDE [Concomitant]
  6. TESTOSTERONE [Concomitant]
  7. FISH OIL [Concomitant]
  8. VITAMIN D3 [Concomitant]
  9. GARLIC [Concomitant]
  10. MVI [Concomitant]
  11. MODAFINIL [Concomitant]
  12. CPAP [Concomitant]
  13. LAMOTRIQINE [Concomitant]
  14. DIVALPROEX SODIUM [Concomitant]

REACTIONS (3)
  - Visual acuity reduced [None]
  - Rash [None]
  - Drug hypersensitivity [None]
